APPROVED DRUG PRODUCT: FLUOXYMESTERONE
Active Ingredient: FLUOXYMESTERONE
Strength: 5MG
Dosage Form/Route: TABLET;ORAL
Application: A088265 | Product #001
Applicant: WATSON LABORATORIES INC
Approved: Dec 6, 1983 | RLD: No | RS: No | Type: DISCN